FAERS Safety Report 14526721 (Version 1)
Quarter: 2018Q1

REPORT INFORMATION
  Report Type: Spontaneous
  Country: DE (occurrence: DE)
  Receive Date: 20180213
  Receipt Date: 20180213
  Transmission Date: 20180509
  Serious: Yes (Hospitalization)
  Sender: FDA-Public Use
  Company Number: DE-AMGEN-DEUSP2018016624

PATIENT
  Sex: Female

DRUGS (9)
  1. TONOTEC [Concomitant]
     Active Substance: AMLODIPINE\RAMIPRIL
     Indication: BLOOD PRESSURE INCREASED
     Dosage: 5 MG, QD
  2. SELENIUM [Concomitant]
     Active Substance: SELENIUM
     Dosage: 200 UNK, QD
  3. XGEVA [Suspect]
     Active Substance: DENOSUMAB
     Indication: PRODUCT USED FOR UNKNOWN INDICATION
     Dosage: UNK UNK, QMO
     Route: 065
     Dates: start: 201605
  4. VALPRO BETA [Concomitant]
     Indication: EPILEPSY
     Dosage: 300 UNK, BID
  5. ASPIRIN. [Concomitant]
     Active Substance: ASPIRIN
     Dosage: UNK UNK, QD
  6. IDEOS [Concomitant]
     Active Substance: CALCIUM CARBONATE\CHOLECALCIFEROL
     Dosage: UNK UNK, QD
  7. LETROZOLE. [Concomitant]
     Active Substance: LETROZOLE
     Indication: BREAST CANCER METASTATIC
     Dosage: 2.5 MG, QD
  8. TAMOXIFEN [Concomitant]
     Active Substance: TAMOXIFEN
  9. THYRONAJOD [Concomitant]
     Active Substance: LEVOTHYROXINE SODIUM\POTASSIUM IODIDE
     Dosage: 50 UNK, QD

REACTIONS (3)
  - Tooth disorder [Unknown]
  - Jaw disorder [Unknown]
  - Abscess oral [Unknown]

NARRATIVE: CASE EVENT DATE: 201711
